FAERS Safety Report 8431806 (Version 3)
Quarter: 2013Q4

REPORT INFORMATION
  Report Type: Spontaneous
  Country: US (occurrence: US)
  Receive Date: 20120229
  Receipt Date: 20131220
  Transmission Date: 20140711
  Serious: No
  Sender: FDA-Public Use
  Company Number: US-BIOGENIDEC-2012BI006929

PATIENT
  Age: 47 Year
  Sex: Male

DRUGS (2)
  1. TYSABRI [Suspect]
     Indication: MULTIPLE SCLEROSIS
     Route: 042
     Dates: start: 20120210
  2. AVONEX [Concomitant]
     Indication: MULTIPLE SCLEROSIS
     Route: 030
     Dates: start: 20110906

REACTIONS (5)
  - Pharyngeal oedema [Recovered/Resolved]
  - Pain [Recovered/Resolved]
  - Influenza [Unknown]
  - Headache [Recovered/Resolved]
  - Multiple sclerosis [Unknown]
